FAERS Safety Report 7517952-3 (Version None)
Quarter: 2011Q2

REPORT INFORMATION
  Report Type: 
  Country: None (occurrence: None)
  Receive Date: 20110527
  Receipt Date: 20110527
  Transmission Date: 20111010
  Serious: Yes (Hospitalization)
  Sender: FDA-Public Use
  Company Number: None

PATIENT
  Sex: Female
  Weight: 64.1 kg

DRUGS (2)
  1. CARBOPLATIN [Suspect]
     Dosage: 533 MG
     Dates: end: 20110518
  2. TAXOL [Suspect]
     Dosage: 289 MG
     Dates: end: 20110518

REACTIONS (15)
  - VOMITING [None]
  - ASPARTATE AMINOTRANSFERASE INCREASED [None]
  - HAEMOGLOBIN INCREASED [None]
  - HAEMATOCRIT DECREASED [None]
  - CONSTIPATION [None]
  - NAUSEA [None]
  - BLOOD CALCIUM DECREASED [None]
  - PCO2 DECREASED [None]
  - BLOOD ALBUMIN DECREASED [None]
  - BLOOD PHOSPHORUS DECREASED [None]
  - ALANINE AMINOTRANSFERASE INCREASED [None]
  - WHITE BLOOD CELL COUNT DECREASED [None]
  - BLOOD SODIUM DECREASED [None]
  - BLOOD CHLORIDE DECREASED [None]
  - BLOOD ALKALINE PHOSPHATASE INCREASED [None]
